FAERS Safety Report 10175865 (Version 2)
Quarter: 2014Q2

REPORT INFORMATION
  Report Type: Spontaneous
  Country: JP (occurrence: JP)
  Receive Date: 20140516
  Receipt Date: 20140527
  Transmission Date: 20141212
  Serious: Yes (Hospitalization)
  Sender: FDA-Public Use
  Company Number: JP-ASTRAZENECA-2014SE32955

PATIENT
  Age: 80 Year
  Sex: Female

DRUGS (5)
  1. CRESTOR [Suspect]
     Indication: DYSLIPIDAEMIA
     Dosage: DOSE UNKNOWN
     Route: 048
  2. FLUITRAN [Concomitant]
     Dosage: DOSE UNKNOWN
     Route: 065
  3. SELARA [Concomitant]
     Dosage: DOSE UNKNOWN
     Route: 065
  4. EXFORGE [Concomitant]
     Dosage: DOSE UNKNOWN
     Route: 065
  5. ADETPHOS [Concomitant]
     Dosage: DOSE UNKNOWN
     Route: 065

REACTIONS (3)
  - Nephrolithiasis [Unknown]
  - Pyelonephritis [Unknown]
  - Blood creatine phosphokinase increased [Unknown]
